FAERS Safety Report 7128145 (Version 3)
Quarter: 2012Q4

REPORT INFORMATION
  Report Type: 
  Country: US (occurrence: US)
  Receive Date: 20090924
  Receipt Date: 20120907
  Transmission Date: 20130627
  Serious: Yes (Hospitalization, Other)
  Sender: FDA-Public Use
  Company Number: US-ASTRAZENECA-2009UW06720

PATIENT
  Age: 70 Year
  Sex: Female
  Weight: 68 kg

DRUGS (10)
  1. SEROQUEL [Suspect]
     Indication: BIPOLAR DISORDER
     Route: 048
     Dates: start: 2007
  2. SEROQUEL [Suspect]
     Indication: SLEEP DISORDER
     Route: 048
     Dates: start: 2007
  3. SEROQUEL [Suspect]
     Indication: BIPOLAR DISORDER
     Route: 048
  4. SEROQUEL [Suspect]
     Indication: SLEEP DISORDER
     Route: 048
  5. CYMBALTA [Concomitant]
  6. CLONAZEPAM [Concomitant]
  7. OXYCODONE [Concomitant]
  8. MORPHINE [Concomitant]
  9. VITAMIN B12 [Concomitant]
  10. OXYGEN [Concomitant]

REACTIONS (13)
  - Pulmonary fibrosis [Unknown]
  - Pulmonary mass [Unknown]
  - Leukaemia in remission [Unknown]
  - Bone pain [Unknown]
  - Hypoacusis [Unknown]
  - Confusional state [Unknown]
  - Pain [Unknown]
  - Pain in extremity [Unknown]
  - Vitamin B12 deficiency [Unknown]
  - Malaise [Not Recovered/Not Resolved]
  - Cough [Unknown]
  - Fatigue [Unknown]
  - Asthenia [Unknown]
